FAERS Safety Report 10088086 (Version 1)
Quarter: 2014Q2

REPORT INFORMATION
  Report Type: Report from Study
  Country: FR (occurrence: FR)
  Receive Date: 20140421
  Receipt Date: 20140421
  Transmission Date: 20141212
  Serious: Yes (Hospitalization)
  Sender: FDA-Public Use
  Company Number: FR-ROCHE-1381153

PATIENT
  Sex: Male
  Weight: 74 kg

DRUGS (9)
  1. PEG-INTERFERON ALFA 2A [Suspect]
     Indication: CHRONIC HEPATITIS B
     Route: 065
     Dates: start: 20130704
  2. RIBAVIRIN [Suspect]
     Indication: CHRONIC HEPATITIS B
     Route: 065
     Dates: start: 20130704
  3. INCIVO [Suspect]
     Indication: CHRONIC HEPATITIS B
     Route: 065
     Dates: start: 20130704, end: 20130925
  4. ELTROMBOPAG [Concomitant]
     Indication: THROMBOCYTOPENIA
     Route: 065
  5. MODIGRAF [Concomitant]
     Indication: PROPHYLAXIS AGAINST TRANSPLANT REJECTION
     Route: 065
     Dates: start: 20120425
  6. MYCOPHENOLATE MOFETIL [Concomitant]
     Indication: PROPHYLAXIS AGAINST TRANSPLANT REJECTION
     Route: 065
     Dates: start: 20120425
  7. KARDEGIC [Concomitant]
     Indication: PROPHYLAXIS
     Route: 065
  8. INIPOMP [Concomitant]
     Indication: GASTROOESOPHAGEAL REFLUX DISEASE
     Route: 065
     Dates: start: 20101111
  9. TARDYFERON (FRANCE) [Concomitant]
     Indication: IRON DEFICIENCY
     Route: 065

REACTIONS (1)
  - Pancytopenia [Unknown]
